FAERS Safety Report 7510399-5 (Version None)
Quarter: 2011Q2

REPORT INFORMATION
  Report Type: 
  Country: None (occurrence: None)
  Receive Date: 20110527
  Receipt Date: 20110523
  Transmission Date: 20111010
  Serious: Yes (Hospitalization)
  Sender: FDA-Public Use
  Company Number: FR-MERCK-0705FRA00016

PATIENT
  Age: 69 Year
  Sex: Female

DRUGS (11)
  1. FOSAMAX PLUS D [Suspect]
     Indication: OSTEOPOROSIS
     Route: 048
     Dates: start: 20060801, end: 20070301
  2. HYDROCHLOROTHIAZIDE AND LOSARTAN POTASSIUM [Concomitant]
     Indication: HYPERTENSION
     Route: 048
  3. DICLOFENAC [Concomitant]
     Indication: ARTHRALGIA
     Route: 048
  4. TRAMADOL HYDROCHLORIDE [Concomitant]
     Indication: ARTHRALGIA
     Route: 048
  5. ACEPROMETAZINE MALEATE AND MEPROBAMATE [Concomitant]
     Route: 048
  6. CALCIUM (UNSPECIFIED) [Concomitant]
     Indication: OSTEOPOROSIS
     Route: 048
     Dates: end: 20060801
  7. VITAMIN D (UNSPECIFIED) [Concomitant]
     Indication: OSTEOPOROSIS
     Route: 048
     Dates: end: 20060801
  8. ACEBUTOLOL HYDROCHLORIDE [Concomitant]
     Indication: HYPERTENSION
     Route: 048
  9. DIAZEPAM [Concomitant]
     Route: 048
  10. OMEPRAZOLE [Concomitant]
     Route: 048
     Dates: start: 20060802
  11. ALENDRONATE SODIUM [Suspect]
     Indication: OSTEOPOROSIS
     Route: 048
     Dates: start: 20041201, end: 20060801

REACTIONS (1)
  - OSTEONECROSIS OF JAW [None]
